FAERS Safety Report 7783176-8 (Version None)
Quarter: 2011Q3

REPORT INFORMATION
  Report Type: 
  Country: None (occurrence: None)
  Receive Date: 20110928
  Receipt Date: 20110919
  Transmission Date: 20111222
  Serious: Yes (Hospitalization, Other)
  Sender: FDA-Public Use
  Company Number: FR-BRISTOL-MYERS SQUIBB COMPANY-16076390

PATIENT
  Age: 50 Year
  Sex: Male

DRUGS (16)
  1. RAMIPRIL [Suspect]
     Route: 048
     Dates: end: 20110805
  2. MYCOPHENOLATE MOFETIL (CELLCEPT) [Suspect]
  3. ATORVASTATIN CALCIUM [Suspect]
  4. ROCEPHIN [Concomitant]
  5. NEXIUM [Concomitant]
  6. METFORMIN HCL [Suspect]
  7. ALLOPURINOL [Concomitant]
  8. UVEDOSE [Concomitant]
  9. PREDNISONE [Concomitant]
  10. AMLODIPINE BESYLATE [Concomitant]
  11. VICTOZA [Concomitant]
  12. LASIX [Concomitant]
  13. COAPROVEL TABS 300MG/12.5MG [Suspect]
     Route: 048
     Dates: end: 20110805
  14. COLCHICINE [Suspect]
     Indication: GOUT
     Route: 048
     Dates: start: 20110730, end: 20110805
  15. NEORAL [Concomitant]
  16. OFLOXACIN [Concomitant]

REACTIONS (7)
  - BACTERAEMIA [None]
  - COLITIS [None]
  - DIARRHOEA [None]
  - LACTIC ACIDOSIS [None]
  - RHABDOMYOLYSIS [None]
  - RENAL FAILURE [None]
  - RENAL FAILURE ACUTE [None]
